FAERS Safety Report 15652980 (Version 1)
Quarter: 2018Q4

REPORT INFORMATION
  Report Type: Report from Study
  Country: BR (occurrence: BR)
  Receive Date: 20181123
  Receipt Date: 20181123
  Transmission Date: 20190205
  Serious: Yes (Death)
  Sender: FDA-Public Use
  Company Number: PHHY2018BR061315

PATIENT
  Sex: Male
  Weight: 110 kg

DRUGS (1)
  1. COSENTYX [Suspect]
     Active Substance: SECUKINUMAB
     Indication: PSORIATIC ARTHROPATHY
     Dosage: 300 MG, UNK
     Route: 058
     Dates: start: 20180627, end: 20181025

REACTIONS (5)
  - Psoriasis [Recovering/Resolving]
  - Dyspnoea [Fatal]
  - Erythema [Unknown]
  - Chronic obstructive pulmonary disease [Fatal]
  - Cardiogenic shock [Fatal]
